FAERS Safety Report 6793941-1 (Version None)
Quarter: 2010Q2

REPORT INFORMATION
  Report Type: 
  Country: None (occurrence: None)
  Receive Date: 20100624
  Receipt Date: 20070213
  Transmission Date: 20101027
  Serious: No
  Sender: FDA-Public Use
  Company Number: US-PFIZER INC-ENC200700026

PATIENT
  Sex: Female
  Weight: 104.7 kg

DRUGS (22)
  1. ARGATROBAN [Suspect]
     Indication: HEPARIN-INDUCED THROMBOCYTOPENIA
     Dosage: 2 MCG/KG/MIN,FREQUENCY:  CONTINUOUS
     Route: 042
     Dates: start: 20070204, end: 20070207
  2. AMIODARONE HCL [Concomitant]
  3. ASCORBIC ACID [Concomitant]
  4. METOPROLOL [Concomitant]
  5. DIGOXIN [Concomitant]
  6. GUAIFENESIN [Concomitant]
  7. INSULIN [Concomitant]
  8. LEVOTHYROXINE SODIUM [Concomitant]
  9. MIDODRINE HYDROCHLORIDE [Concomitant]
  10. MACROGOL [Concomitant]
  11. PARICALCITOL [Concomitant]
  12. WARFARIN SODIUM [Concomitant]
  13. SEVELAMER [Concomitant]
  14. ZINC SULFATE [Concomitant]
  15. MAGNESIUM OXIDE [Concomitant]
  16. CHLOROXYLENOL, HEXACHLOROPHENE [Concomitant]
  17. PARACETAMOL [Concomitant]
  18. BISACODYL [Concomitant]
  19. HYDROCODONE BITARTRATE + ACETAMINOPHEN [Concomitant]
  20. IPRATROPIUM BROMIDE [Concomitant]
  21. ONDANSETRON [Concomitant]
  22. SENNA ALEXANDRINA [Concomitant]

REACTIONS (2)
  - COAGULATION TIME PROLONGED [None]
  - INTERNATIONAL NORMALISED RATIO INCREASED [None]
